FAERS Safety Report 7189276-8 (Version None)
Quarter: 2010Q4

REPORT INFORMATION
  Report Type: 
  Country: None (occurrence: None)
  Receive Date: 20101222
  Receipt Date: 20100805
  Transmission Date: 20110411
  Serious: No
  Sender: FDA-Public Use
  Company Number: US-AMGEN-KDL429281

PATIENT

DRUGS (12)
  1. ENBREL [Suspect]
     Indication: PRODUCT USED FOR UNKNOWN INDICATION
     Dosage: 50 MG, QWK
     Route: 058
  2. RAMIPRIL [Concomitant]
     Dosage: 10 MG, UNK
  3. PREDNISONE [Concomitant]
     Dosage: 1 MG, UNK
  4. LEFLUNOMIDE [Concomitant]
     Dosage: 10 MG, UNK
  5. GEMFIBROZIL [Concomitant]
     Dosage: 600 MG, UNK
  6. NAPROXEN [Concomitant]
     Dosage: 500 MG, UNK
  7. SIMVASTATIN [Concomitant]
     Dosage: 10 MG, UNK
  8. BUDESONIDE/FORMOTEROL FUMARATE [Concomitant]
  9. LIMBITROL [Concomitant]
     Dosage: 12.5 MG, UNK
  10. ALBUTEROL SULFATE [Concomitant]
     Dosage: .63 MG, UNK
  11. TIOTROPIUM BROMIDE [Concomitant]
     Dosage: UNK UNK, UNK
  12. ALBUTEROL INHALER [Concomitant]

REACTIONS (3)
  - ABDOMINAL DISTENSION [None]
  - HYPERHIDROSIS [None]
  - INJECTION SITE REACTION [None]
